FAERS Safety Report 5476596-8 (Version None)
Quarter: 2007Q4

REPORT INFORMATION
  Report Type: 
  Country: None (occurrence: None)
  Receive Date: 20071004
  Receipt Date: 20070928
  Transmission Date: 20080405
  Serious: No
  Sender: FDA-Public Use
  Company Number: PHRM2007FR02187

PATIENT
  Age: 76 Year
  Sex: Male

DRUGS (3)
  1. EXFORGE [Suspect]
     Indication: HYPERTENSION
     Dosage: 1 DF, QD
     Route: 048
     Dates: start: 20070914, end: 20070916
  2. FLECAINIDE ACETATE [Suspect]
     Indication: ARRHYTHMIA
     Dosage: 100MG, UNK
     Route: 048
     Dates: start: 20070914
  3. KARDEGIC [Concomitant]
     Dosage: UNK, UNK

REACTIONS (5)
  - ATRIOVENTRICULAR BLOCK [None]
  - BLOOD CREATININE INCREASED [None]
  - EYELID OEDEMA [None]
  - SWELLING FACE [None]
  - WEIGHT INCREASED [None]
